FAERS Safety Report 14750436 (Version 1)
Quarter: 2018Q2

REPORT INFORMATION
  Report Type: Spontaneous
  Country: PL (occurrence: PL)
  Receive Date: 20180412
  Receipt Date: 20180412
  Transmission Date: 20180711
  Serious: Yes (Other)
  Sender: FDA-Public Use
  Company Number: PL-BRISTOL-MYERS SQUIBB COMPANY-BMS-2018-032544

PATIENT
  Age: 80 Year
  Sex: Female

DRUGS (1)
  1. NIVOLUMAB [Suspect]
     Active Substance: NIVOLUMAB
     Indication: MALIGNANT MELANOMA
     Dosage: UNAVAILABLE
     Route: 065

REACTIONS (6)
  - Dizziness [Unknown]
  - Hypoalbuminaemia [Unknown]
  - Movement disorder [Unknown]
  - Hyperuricaemia [Unknown]
  - Hyperleukocytosis [Unknown]
  - Asthenia [Unknown]
